FAERS Safety Report 5364139-9 (Version None)
Quarter: 2007Q2

REPORT INFORMATION
  Report Type: 
  Country: None (occurrence: None)
  Receive Date: 20070620
  Receipt Date: 20070607
  Transmission Date: 20071010
  Serious: Yes (Hospitalization)
  Sender: FDA-Public Use
  Company Number: IN-ELI_LILLY_AND_COMPANY-IN200706001716

PATIENT
  Age: 74 Year
  Sex: Female

DRUGS (3)
  1. FORTEO [Suspect]
     Indication: OSTEOPOROSIS
     Dosage: 20 UG, DAILY (1/D)
     Route: 058
     Dates: start: 20070414, end: 20070603
  2. COLECALCIFEROL [Concomitant]
     Indication: OSTEOPOROSIS
     Dosage: 60000 IU, WEEKLY (1/W)
     Route: 048
     Dates: start: 20070414
  3. ULTRACET [Concomitant]
     Dosage: UNK, UNK
     Route: 048

REACTIONS (5)
  - AMNESIA [None]
  - DIZZINESS [None]
  - ELECTROLYTE IMBALANCE [None]
  - HYPERCALCAEMIA [None]
  - LOSS OF CONSCIOUSNESS [None]
